FAERS Safety Report 10003853 (Version 2)
Quarter: 2014Q1

REPORT INFORMATION
  Report Type: Spontaneous
  Country: US (occurrence: US)
  Receive Date: 20140312
  Receipt Date: 20140325
  Transmission Date: 20141002
  Serious: Yes (Death, Hospitalization)
  Sender: FDA-Public Use
  Company Number: US-LUNDBECK-DKLU1098071

PATIENT
  Sex: Female

DRUGS (12)
  1. SABRIL (FOR ORAL SOLUTION) [Suspect]
     Indication: CONVULSION
     Dates: start: 20140123
  2. ONFI [Concomitant]
     Indication: PRODUCT USED FOR UNKNOWN INDICATION
  3. VIMPAT [Concomitant]
     Indication: PRODUCT USED FOR UNKNOWN INDICATION
  4. DIAZEPAM [Concomitant]
     Indication: PRODUCT USED FOR UNKNOWN INDICATION
  5. LAMICTAL [Concomitant]
     Indication: PRODUCT USED FOR UNKNOWN INDICATION
  6. TOPAMAX [Concomitant]
     Indication: PRODUCT USED FOR UNKNOWN INDICATION
  7. PHENOBARBITAL [Concomitant]
     Indication: PRODUCT USED FOR UNKNOWN INDICATION
  8. FELBAMATE [Concomitant]
     Indication: PRODUCT USED FOR UNKNOWN INDICATION
  9. PROPOFOL [Concomitant]
     Indication: PRODUCT USED FOR UNKNOWN INDICATION
  10. KETAMINE [Concomitant]
     Indication: PRODUCT USED FOR UNKNOWN INDICATION
  11. DEPAKOTE [Concomitant]
     Indication: PRODUCT USED FOR UNKNOWN INDICATION
  12. PYRIDOXINE [Concomitant]
     Indication: PRODUCT USED FOR UNKNOWN INDICATION

REACTIONS (5)
  - Cardiac arrest [Fatal]
  - Arrhythmia [Fatal]
  - Acidosis [Unknown]
  - Respiratory distress [Unknown]
  - Status epilepticus [Unknown]
